FAERS Safety Report 16150100 (Version 1)
Quarter: 2019Q2

REPORT INFORMATION
  Report Type: Spontaneous
  Country: JP (occurrence: JP)
  Receive Date: 20190402
  Receipt Date: 20190402
  Transmission Date: 20190711
  Serious: Yes (Other)
  Sender: FDA-Public Use
  Company Number: JP-TEIKOKU PHARMA USA, INC.-JP-2019TEI000001

PATIENT
  Age: 59 Year
  Sex: Male

DRUGS (3)
  1. DOCETAXEL INJECTION (NON-ALCOHOL FORMULA) [Suspect]
     Active Substance: DOCETAXEL
     Indication: LUNG ADENOCARCINOMA RECURRENT
     Dosage: 11 CYCLES, UNK
     Route: 065
  2. BEVACIZUMAB. [Suspect]
     Active Substance: BEVACIZUMAB
     Indication: LUNG ADENOCARCINOMA RECURRENT
     Dosage: 11 CYCLES, UNK
     Route: 065
  3. RADIOTHERAPY [Suspect]
     Active Substance: RADIATION THERAPY
     Indication: LUNG ADENOCARCINOMA RECURRENT
     Dosage: UNK
     Route: 065

REACTIONS (1)
  - Tracheal fistula [Recovered/Resolved]
